FAERS Safety Report 21819762 (Version 1)
Quarter: 2023Q1

REPORT INFORMATION
  Report Type: Spontaneous
  Country: CA (occurrence: CA)
  Receive Date: 20230104
  Receipt Date: 20230104
  Transmission Date: 20230417
  Serious: Yes (Hospitalization, Other)
  Sender: FDA-Public Use
  Company Number: CA-BIOVITRUM-2021CA11588

PATIENT
  Age: 54 Year
  Sex: Female

DRUGS (3)
  1. KINERET [Suspect]
     Active Substance: ANAKINRA
     Indication: Pericarditis
     Dosage: INJECTS ONCE EVERY TWO DAYS
  2. KINERET [Suspect]
     Active Substance: ANAKINRA
  3. KINERET [Suspect]
     Active Substance: ANAKINRA
     Dates: start: 20210305

REACTIONS (23)
  - Pneumonia [Unknown]
  - COVID-19 [Unknown]
  - Loss of consciousness [Unknown]
  - Pericarditis [Unknown]
  - Arthralgia [Unknown]
  - Asthenia [Unknown]
  - Autoinflammatory disease [Unknown]
  - C-reactive protein increased [Unknown]
  - Chest pain [Unknown]
  - Condition aggravated [Unknown]
  - Fatigue [Unknown]
  - Head injury [Unknown]
  - Malaise [Unknown]
  - Orthostatic hypotension [Unknown]
  - Quality of life decreased [Unknown]
  - Renal pain [Unknown]
  - Serum amyloid A protein increased [Unknown]
  - Skin disorder [Unknown]
  - Tachycardia [Unknown]
  - Injection site reaction [Unknown]
  - Drug ineffective [Unknown]
  - Product dose omission issue [Unknown]
  - Off label use [Unknown]

NARRATIVE: CASE EVENT DATE: 20210305
